FAERS Safety Report 5905508-5 (Version None)
Quarter: 2008Q4

REPORT INFORMATION
  Report Type: 
  Country: None (occurrence: None)
  Receive Date: 20081002
  Receipt Date: 20080825
  Transmission Date: 20090506
  Serious: Yes (Other)
  Sender: FDA-Public Use
  Company Number: GB-ROCHE-583546

PATIENT

DRUGS (1)
  1. MYCOPHENOLATE MOFETIL [Suspect]
     Route: 065

REACTIONS (4)
  - ADVERSE DRUG REACTION [None]
  - AUTOIMMUNE DISORDER [None]
  - DRUG INTOLERANCE [None]
  - GASTROINTESTINAL DISORDER [None]
